FAERS Safety Report 7808284 (Version 2)
Quarter: 2012Q4

REPORT INFORMATION
  Report Type: 
  Country: US (occurrence: US)
  Receive Date: 20110211
  Receipt Date: 20120911
  Transmission Date: 20130627
  Serious: No
  Sender: FDA-Public Use
  Company Number: US-BIOGENIDEC-2011BI004343

PATIENT
  Age: 38 Year
  Sex: Female

DRUGS (1)
  1. TYSABRI [Suspect]
     Indication: MULTIPLE SCLEROSIS
     Route: 042
     Dates: start: 20091203, end: 20111206

REACTIONS (9)
  - Menorrhagia [Recovered/Resolved]
  - Painful respiration [Unknown]
  - Menstruation irregular [Not Recovered/Not Resolved]
  - Middle ear effusion [Unknown]
  - Hyperhidrosis [Recovered/Resolved]
  - Increased upper airway secretion [Unknown]
  - Burning sensation [Recovered/Resolved]
  - Feeling cold [Recovered/Resolved]
  - Fatigue [Recovered/Resolved]
